FAERS Safety Report 8278249-X (Version None)
Quarter: 2012Q2

REPORT INFORMATION
  Report Type: 
  Country: None (occurrence: None)
  Receive Date: 20120412
  Receipt Date: 20110412
  Transmission Date: 20120825
  Serious: No
  Sender: FDA-Public Use
  Company Number: US-ASTRAZENECA-2011SE21041

PATIENT
  Sex: Female

DRUGS (3)
  1. NEXIUM [Suspect]
     Route: 048
     Dates: start: 20110401
  2. NEXIUM [Suspect]
     Route: 048
     Dates: start: 20110201, end: 20110401
  3. NEXIUM [Suspect]
     Indication: GASTROOESOPHAGEAL REFLUX DISEASE
     Route: 048
     Dates: start: 20050101, end: 20110201

REACTIONS (7)
  - OESOPHAGEAL INJURY [None]
  - INAPPROPRIATE SCHEDULE OF DRUG ADMINISTRATION [None]
  - CONFUSIONAL STATE [None]
  - CONSTIPATION [None]
  - ABDOMINAL INJURY [None]
  - FEELING ABNORMAL [None]
  - ASTHENIA [None]
